FAERS Safety Report 7318447-2 (Version None)
Quarter: 2011Q1

REPORT INFORMATION
  Report Type: 
  Country: None (occurrence: None)
  Receive Date: 20110223
  Receipt Date: 20110223
  Transmission Date: 20110831
  Serious: Yes (Hospitalization)
  Sender: FDA-Public Use
  Company Number: None

PATIENT
  Age: 66 Year
  Sex: Male
  Weight: 97.7 kg

DRUGS (1)
  1. ALENDRONATE [Suspect]
     Indication: OSTEOPOROSIS PROPHYLAXIS
     Dosage: 35 MG QWEEK PO
     Route: 048
     Dates: start: 20100514, end: 20100803

REACTIONS (2)
  - GASTROINTESTINAL HAEMORRHAGE [None]
  - ULCER [None]
